FAERS Safety Report 8558933-0 (Version None)
Quarter: 2012Q3

REPORT INFORMATION
  Report Type: 
  Country: None (occurrence: None)
  Receive Date: 20120802
  Receipt Date: 20120719
  Transmission Date: 20120928
  Serious: Yes (Hospitalization)
  Sender: FDA-Public Use
  Company Number: DE-MYLANLABS-2012S1012806

PATIENT
  Age: 3 Year
  Sex: Male
  Weight: 18 kg

DRUGS (1)
  1. METOPROLOL TARTRATE/HYDROCHLOROTHIAZIDE [Suspect]
     Route: 048
     Dates: start: 20120622

REACTIONS (2)
  - ACCIDENTAL EXPOSURE [None]
  - ACCIDENTAL DRUG INTAKE BY CHILD [None]
